FAERS Safety Report 12838919 (Version 5)
Quarter: 2017Q2

REPORT INFORMATION
  Report Type: Spontaneous
  Country: US (occurrence: US)
  Receive Date: 20161012
  Receipt Date: 20170406
  Transmission Date: 20170830
  Serious: Yes (Hospitalization, Other)
  Sender: FDA-Public Use
  Company Number: US-PFIZER INC-2016469939

PATIENT
  Age: 54 Year
  Sex: Male
  Weight: 88 kg

DRUGS (15)
  1. XANAX [Concomitant]
     Active Substance: ALPRAZOLAM
     Indication: PANIC ATTACK
  2. SEROQUEL [Concomitant]
     Active Substance: QUETIAPINE FUMARATE
     Indication: INSOMNIA
     Dosage: 300 MG, UNK
     Dates: start: 2010
  3. CLONAZEPAM. [Concomitant]
     Active Substance: CLONAZEPAM
     Indication: ANXIETY
     Dosage: UNK
     Dates: start: 2013
  4. AMLODIPINE BESILATE [Concomitant]
     Active Substance: AMLODIPINE BESYLATE
     Indication: BLOOD PRESSURE ABNORMAL
     Dosage: 5 MG, 1X/DAY (5 MG 1 IN MORNING)
  5. BABY ASPIRIN [Concomitant]
     Active Substance: ASPIRIN
     Dosage: 81 MG, UNK
     Dates: start: 201611
  6. NARDIL [Suspect]
     Active Substance: PHENELZINE SULFATE
     Dosage: 30 MG, 2X/DAY
     Route: 048
     Dates: start: 20140723
  7. MELOXICAM. [Concomitant]
     Active Substance: MELOXICAM
     Indication: PAIN IN EXTREMITY
     Dosage: 15 MG, UNK
     Dates: start: 20161114, end: 20161120
  8. NARDIL [Suspect]
     Active Substance: PHENELZINE SULFATE
     Dosage: 15 MG, 4X/DAY
     Route: 048
     Dates: start: 2016
  9. XANAX [Concomitant]
     Active Substance: ALPRAZOLAM
     Indication: ANXIETY
  10. ADVIL [Concomitant]
     Active Substance: IBUPROFEN
     Dosage: 1 DF, DAILY
  11. NARDIL [Suspect]
     Active Substance: PHENELZINE SULFATE
     Indication: DEPRESSION
     Dosage: 15 MG, 2X/DAY (ONE IN THE MORNING AND ONE IN THE AFTERNOON)
     Route: 048
     Dates: start: 2008
  12. SEROQUEL [Concomitant]
     Active Substance: QUETIAPINE FUMARATE
     Dosage: 300 MG, 1X/DAY (ONCE AT BEDTIME)
     Dates: start: 2013
  13. CLONAZEPAM. [Concomitant]
     Active Substance: CLONAZEPAM
     Dosage: 1 MG, 2X/DAY (1 TAB TWICE A DAY 1 MG)
     Route: 048
     Dates: start: 2016
  14. XANAX [Concomitant]
     Active Substance: ALPRAZOLAM
     Indication: AGORAPHOBIA
     Dosage: 0.5 MG, AS NEEDED (TWICE AS NEEDED)
     Route: 048
     Dates: start: 2007
  15. ASPIRIN. [Concomitant]
     Active Substance: ASPIRIN
     Indication: CARDIAC DISORDER
     Dosage: 81 MG, 1X/DAY

REACTIONS (8)
  - Distractibility [Unknown]
  - Memory impairment [Not Recovered/Not Resolved]
  - Drug ineffective [Not Recovered/Not Resolved]
  - Malaise [Recovered/Resolved]
  - Limb injury [Not Recovered/Not Resolved]
  - Angina pectoris [Not Recovered/Not Resolved]
  - Thinking abnormal [Not Recovered/Not Resolved]
  - Intentional overdose [Not Recovered/Not Resolved]

NARRATIVE: CASE EVENT DATE: 2010
